FAERS Safety Report 16437728 (Version 2)
Quarter: 2019Q3

REPORT INFORMATION
  Report Type: Spontaneous
  Country: US (occurrence: US)
  Receive Date: 20190616
  Receipt Date: 20190704
  Transmission Date: 20191004
  Serious: No
  Sender: FDA-Public Use
  Company Number: US-TEVA-2019-US-1054230

PATIENT
  Sex: Female

DRUGS (2)
  1. CLONAZEPAM ACTAVIS [Suspect]
     Active Substance: CLONAZEPAM
     Indication: ANXIETY
     Dosage: TAKING PRODUCT ONCE IN THE MORNING AND ONCE AT NIGHT
  2. CLONAZEPAM ACTAVIS [Suspect]
     Active Substance: CLONAZEPAM
     Indication: PANIC DISORDER

REACTIONS (13)
  - Oral pain [Unknown]
  - Drug ineffective [Unknown]
  - Withdrawal syndrome [Unknown]
  - Product substitution issue [Unknown]
  - Tremor [Unknown]
  - Nausea [Unknown]
  - Loss of personal independence in daily activities [Unknown]
  - Anxiety [Unknown]
  - Headache [Unknown]
  - Therapeutic response shortened [Unknown]
  - Mouth swelling [Unknown]
  - Abdominal discomfort [Unknown]
  - Arthralgia [Unknown]
